FAERS Safety Report 13472168 (Version 1)
Quarter: 2017Q2

REPORT INFORMATION
  Report Type: Spontaneous
  Country: US (occurrence: US)
  Receive Date: 20170424
  Receipt Date: 20170424
  Transmission Date: 20170830
  Serious: Yes (Other)
  Sender: FDA-Public Use
  Company Number: US-LANNETT COMPANY, INC.-US-2017LAN000713

PATIENT

DRUGS (1)
  1. LEVOTHYROXINE SODIUM. [Suspect]
     Active Substance: LEVOTHYROXINE SODIUM
     Indication: HYPOTHYROIDISM
     Dosage: 75MCG; ONE AND A HALF TABLETS 5 DAYS A WEEK AND ONE TABLET ON SUNDAYS/WEDNESDAYS
     Route: 048
     Dates: start: 201610, end: 2017

REACTIONS (4)
  - Hyperthyroidism [Recovering/Resolving]
  - Gastrointestinal disorder [Recovering/Resolving]
  - Product quality issue [Unknown]
  - Malaise [Recovering/Resolving]

NARRATIVE: CASE EVENT DATE: 201610
